FAERS Safety Report 13572502 (Version 1)
Quarter: 2017Q2

REPORT INFORMATION
  Report Type: Spontaneous
  Country: US (occurrence: US)
  Receive Date: 20170523
  Receipt Date: 20170523
  Transmission Date: 20170830
  Serious: Yes (Disabling)
  Sender: FDA-Public Use
  Company Number: None

PATIENT
  Age: 60 Year
  Sex: Female
  Weight: 55.8 kg

DRUGS (6)
  1. LISINOPRIL. [Concomitant]
     Active Substance: LISINOPRIL
  2. VITAMIN D3 [Concomitant]
     Active Substance: CHOLECALCIFEROL
  3. LEVAQUIN [Suspect]
     Active Substance: LEVOFLOXACIN
     Indication: SINUSITIS
     Dosage: ?          QUANTITY:14 TABLET(S);?
     Route: 048
     Dates: start: 20170331, end: 20170417
  4. BUDESONIDE. [Concomitant]
     Active Substance: BUDESONIDE
  5. VITAMIN B COMPLEX [Concomitant]
     Active Substance: CYANOCOBALAMIN\DEXPANTHENOL\NIACINAMIDE\PYRIDOXINE HYDROCHLORIDE\RIBOFLAVIN 5^-PHOSPHATE SODIUM\THIAMINE HYDROCHLORIDE\VITAMIN B COMPLEX
  6. ANABOLIC LABS MULT VITAMIN [Concomitant]

REACTIONS (15)
  - Joint effusion [None]
  - Paraesthesia [None]
  - Pain in extremity [None]
  - Muscle strain [None]
  - Musculoskeletal stiffness [None]
  - Joint swelling [None]
  - Arthralgia [None]
  - Swollen tongue [None]
  - Tongue biting [None]
  - Hypoaesthesia [None]
  - Tenderness [None]
  - Movement disorder [None]
  - Tendon disorder [None]
  - Sleep disorder [None]
  - Musculoskeletal pain [None]

NARRATIVE: CASE EVENT DATE: 20170417
